FAERS Safety Report 4865452-1 (Version None)
Quarter: 2005Q4

REPORT INFORMATION
  Report Type: 
  Country: None (occurrence: None)
  Receive Date: 20051219
  Receipt Date: 20051206
  Transmission Date: 20060501
  Serious: Yes (Life-Threatening, Hospitalization)
  Sender: FDA-Public Use
  Company Number: MK200512-0133-1

PATIENT
  Age: 65 Year
  Sex: Female

DRUGS (1)
  1. OPTIRAY 320 [Suspect]
     Indication: ARTERIOGRAM
     Dosage: 125 ML, SINGLE USE
     Dates: end: 20040101

REACTIONS (9)
  - CHILLS [None]
  - COLD SWEAT [None]
  - DIZZINESS [None]
  - ECG SIGNS OF MYOCARDIAL ISCHAEMIA [None]
  - LOSS OF CONSCIOUSNESS [None]
  - NAUSEA [None]
  - NON-CARDIOGENIC PULMONARY OEDEMA [None]
  - SINUS TACHYCARDIA [None]
  - SPUTUM ABNORMAL [None]
